FAERS Safety Report 9461227 (Version 2)
Quarter: 2013Q4

REPORT INFORMATION
  Report Type: Spontaneous
  Country: FR (occurrence: FR)
  Receive Date: 20130816
  Receipt Date: 20131118
  Transmission Date: 20140711
  Serious: Yes (Hospitalization, Other)
  Sender: FDA-Public Use
  Company Number: FR-ROCHE-1099063

PATIENT
  Age: 40 Year
  Sex: Female
  Weight: 71 kg

DRUGS (5)
  1. ROFERON-A [Suspect]
     Indication: MALIGNANT MELANOMA
     Route: 042
     Dates: start: 201206, end: 201308
  2. ROFERON-A [Suspect]
     Dosage: DOSE REDUCED TO 2/3RD OF THE EARLIER DOSE
     Route: 042
     Dates: end: 201308
  3. ROWASA [Concomitant]
     Indication: COLITIS ULCERATIVE
  4. ALMOGRAN [Concomitant]
     Indication: MIGRAINE
  5. EFFEXOR [Concomitant]
     Indication: DEPRESSION

REACTIONS (7)
  - Neutropenia [Not Recovered/Not Resolved]
  - Rash [Recovered/Resolved]
  - Fatigue [Not Recovered/Not Resolved]
  - Thrombocytopenia [Not Recovered/Not Resolved]
  - Asthenia [Not Recovered/Not Resolved]
  - Alopecia [Not Recovered/Not Resolved]
  - Epilepsy [Recovered/Resolved]
